FAERS Safety Report 23557584 (Version 4)
Quarter: 2024Q2

REPORT INFORMATION
  Report Type: Spontaneous
  Country: US (occurrence: US)
  Receive Date: 20240223
  Receipt Date: 20240529
  Transmission Date: 20240716
  Serious: No
  Sender: FDA-Public Use
  Company Number: US-Calliditas-2024CAL00219

PATIENT
  Age: 39 Year
  Sex: Female
  Weight: 63 kg

DRUGS (1)
  1. TARPEYO [Suspect]
     Active Substance: BUDESONIDE
     Indication: IgA nephropathy
     Dosage: 16 MG (4 MG CAPSULES) ONCE DAILY
     Route: 048
     Dates: start: 20240208

REACTIONS (15)
  - Nasopharyngitis [Recovered/Resolved]
  - Pyrexia [Unknown]
  - Rhinorrhoea [Unknown]
  - Decreased appetite [Unknown]
  - Thirst [Unknown]
  - Anxiety [Unknown]
  - Nervousness [Unknown]
  - Irritability [Unknown]
  - Social avoidant behaviour [Unknown]
  - Generalised oedema [Recovered/Resolved]
  - Infection susceptibility increased [Unknown]
  - Prescribed underdose [Unknown]
  - Muscle spasms [Recovering/Resolving]
  - Insomnia [Recovering/Resolving]
  - Hypoaesthesia [Recovering/Resolving]
